FAERS Safety Report 14001041 (Version 2)
Quarter: 2017Q3

REPORT INFORMATION
  Report Type: Spontaneous
  Country: PT (occurrence: PT)
  Receive Date: 20170922
  Receipt Date: 20170928
  Transmission Date: 20171128
  Serious: Yes (Life-Threatening, Other)
  Sender: FDA-Public Use
  Company Number: PT-009507513-1709PRT010078

PATIENT
  Age: 23 Year
  Sex: Female

DRUGS (14)
  1. DESLORATADINE. [Suspect]
     Active Substance: DESLORATADINE
     Route: 048
  2. DEXAMETHASONE SODIUM PHOSPHATE. [Suspect]
     Active Substance: DEXAMETHASONE SODIUM PHOSPHATE
  3. MONTELUKAST SODIUM. [Suspect]
     Active Substance: MONTELUKAST SODIUM
  4. IBUPROFEN. [Suspect]
     Active Substance: IBUPROFEN
  5. HYDROXYZINE [Suspect]
     Active Substance: HYDROXYZINE HYDROCHLORIDE
  6. DEFLAZACORT [Suspect]
     Active Substance: DEFLAZACORT
  7. EBASTINE [Suspect]
     Active Substance: EBASTINE
  8. CLEMASTINE [Suspect]
     Active Substance: CLEMASTINE
  9. LORATADINE. [Suspect]
     Active Substance: LORATADINE
  10. HYDROCORTISONE. [Suspect]
     Active Substance: HYDROCORTISONE
  11. ACETAMINOPHEN. [Suspect]
     Active Substance: ACETAMINOPHEN
  12. METHYLPREDNISOLONE. [Suspect]
     Active Substance: METHYLPREDNISOLONE
  13. FLURBIPROFEN. [Suspect]
     Active Substance: FLURBIPROFEN
  14. CETIRIZINE HYDROCHLORIDE. [Suspect]
     Active Substance: CETIRIZINE HYDROCHLORIDE

REACTIONS (2)
  - Drug reaction with eosinophilia and systemic symptoms [Unknown]
  - Maternal exposure before pregnancy [Unknown]
